FAERS Safety Report 15242249 (Version 8)
Quarter: 2019Q1

REPORT INFORMATION
  Report Type: Report from Study
  Country: DE (occurrence: DE)
  Receive Date: 20180806
  Receipt Date: 20190330
  Transmission Date: 20190417
  Serious: Yes (Hospitalization, Other)
  Sender: FDA-Public Use
  Company Number: DE-ACCORD-070338

PATIENT
  Sex: Female
  Weight: 94 kg

DRUGS (9)
  1. METOPROLOL. [Concomitant]
     Active Substance: METOPROLOL
     Indication: ATRIAL FIBRILLATION
     Dosage: 1 DF (47.5 MG), BID
     Route: 048
     Dates: start: 20170712
  2. PHENPROCOUMON [Concomitant]
     Active Substance: PHENPROCOUMON
     Indication: ATRIAL FIBRILLATION
     Dosage: 3 MG, PRN (ACCORDING TO QUICK VALUE)
     Route: 048
     Dates: start: 20110816, end: 20171108
  3. NOVALGIN [Concomitant]
     Indication: PAIN
     Dosage: 500 MG, TID  (1-1-1-0)
     Route: 048
     Dates: start: 20170922
  4. RAMIPRIL. [Concomitant]
     Active Substance: RAMIPRIL
     Indication: HYPERTENSION
     Dosage: 0.5 DF, BID
     Route: 048
     Dates: start: 20071207, end: 20170321
  5. AMIODARONE [Concomitant]
     Active Substance: AMIODARONE
     Indication: ATRIAL FIBRILLATION
     Route: 048
     Dates: start: 20071207
  6. TORASEMIDE [Concomitant]
     Active Substance: TORSEMIDE
     Indication: FLUID RETENTION
     Dosage: 2 DF, QD AND 1 DF, QD
     Route: 048
     Dates: start: 20160712, end: 20170428
  7. QUETIAPINE. [Suspect]
     Active Substance: QUETIAPINE
     Indication: PSYCHOMOTOR HYPERACTIVITY
     Dosage: 1 DF (300 MG), QD, 0-0-0-1
     Route: 048
     Dates: start: 20111128
  8. ENTRESTO [Suspect]
     Active Substance: SACUBITRIL\VALSARTAN
     Indication: CARDIAC FAILURE CHRONIC
     Dosage: 1 DF (24 MG SACUBITRIL, 26 MG VALSARTAN), BID
     Route: 048
     Dates: start: 20170322
  9. SPIRONOLACTONE. [Concomitant]
     Active Substance: SPIRONOLACTONE
     Indication: LEFT VENTRICULAR FAILURE
     Dosage: 0.5 DF (50MG), QD, 0-0.5-0-0
     Route: 048
     Dates: start: 20170321, end: 20170831

REACTIONS (14)
  - Cholelithiasis [Unknown]
  - Blood creatinine increased [Not Recovered/Not Resolved]
  - Angina pectoris [Recovered/Resolved]
  - Atrial fibrillation [Unknown]
  - Hepatic cyst [Unknown]
  - Contraindicated product administered [Unknown]
  - Off label use [Unknown]
  - Glomerular filtration rate decreased [Unknown]
  - Blood potassium increased [Unknown]
  - Device stimulation issue [Recovered/Resolved]
  - Acute kidney injury [Recovering/Resolving]
  - Cardiac failure [Unknown]
  - Gastroenteritis [Recovered/Resolved]
  - Urinary retention [Unknown]

NARRATIVE: CASE EVENT DATE: 20170409
